FAERS Safety Report 8336084-8 (Version None)
Quarter: 2012Q1

REPORT INFORMATION
  Report Type: 
  Country: None (occurrence: None)
  Receive Date: 20120329
  Receipt Date: 20090909
  Transmission Date: 20120608
  Serious: Yes (Other)
  Sender: FDA-Public Use
  Company Number: PHEH2009US08238

PATIENT
  Sex: Male

DRUGS (8)
  1. ALPRAZOLAM [Concomitant]
  2. ACETAMINOPHEN [Concomitant]
  3. FISH OIL (FISH OIL) [Concomitant]
  4. EXELON [Suspect]
     Dosage: 4.6 MG, TRANSDERMAL
     Route: 062
  5. PLAVIX [Concomitant]
  6. BONIVA [Concomitant]
  7. CITRACAL (CALCIUM CITRATE) [Concomitant]
  8. ASPIRIN [Concomitant]

REACTIONS (1)
  - HEART RATE IRREGULAR [None]
